FAERS Safety Report 5487600-5 (Version None)
Quarter: 2007Q4

REPORT INFORMATION
  Report Type: 
  Country: None (occurrence: None)
  Receive Date: 20071016
  Receipt Date: 20071008
  Transmission Date: 20080405
  Serious: Yes (Hospitalization)
  Sender: FDA-Public Use
  Company Number: US-ELI_LILLY_AND_COMPANY-US200710002015

PATIENT
  Sex: Female
  Weight: 92.063 kg

DRUGS (12)
  1. BYETTA [Suspect]
     Indication: TYPE 2 DIABETES MELLITUS
     Dosage: 5 UG, 2/D
     Route: 058
     Dates: start: 20060401
  2. BYETTA [Suspect]
     Dosage: 10 UG, 2/D
     Route: 058
     Dates: start: 20060801
  3. BYETTA [Suspect]
     Dosage: 10 UG, 2/D
     Route: 058
     Dates: start: 20070401
  4. METFORMIN HCL [Concomitant]
     Indication: DIABETES MELLITUS
     Dosage: UNK, UNKNOWN
     Route: 065
  5. HUMALOG [Concomitant]
     Indication: DIABETES MELLITUS
     Dosage: UNK, UNKNOWN
     Route: 065
  6. HUMULIN /00646002/ [Concomitant]
     Indication: DIABETES MELLITUS
     Dosage: UNK, UNKNOWN
     Route: 058
  7. AMITRIPTYLINE HCL [Concomitant]
     Indication: NEURALGIA
     Dosage: UNK, DAILY (1/D)
     Route: 048
     Dates: start: 20020101
  8. FUROSEMIDE [Concomitant]
     Indication: FLUID RETENTION
     Dosage: 20 MG, DAILY (1/D)
     Route: 048
  9. LOTREL [Concomitant]
     Indication: BLOOD PRESSURE INCREASED
     Dosage: 540 MG, DAILY (1/D)
     Route: 048
  10. ISOSORBIDE DINITRATE [Concomitant]
     Indication: CARDIAC DISORDER
     Dosage: 20 MG, 2/D
     Route: 048
     Dates: start: 19960101
  11. LOPRESSOR [Concomitant]
     Indication: BLOOD PRESSURE INCREASED
     Dosage: 100 MG, 2/D
     Route: 048
  12. LIPITOR [Concomitant]
     Indication: BLOOD CHOLESTEROL INCREASED
     Dosage: 20 MG, DAILY (1/D)
     Route: 048
     Dates: start: 19960101

REACTIONS (5)
  - ABDOMINAL PAIN [None]
  - ABNORMAL FAECES [None]
  - DIVERTICULITIS [None]
  - FLATULENCE [None]
  - GASTROINTESTINAL PAIN [None]
